FAERS Safety Report 22107809 (Version 1)
Quarter: 2023Q1

REPORT INFORMATION
  Report Type: Spontaneous
  Country: US (occurrence: US)
  Receive Date: 20230317
  Receipt Date: 20230317
  Transmission Date: 20230418
  Serious: Yes (Other)
  Sender: FDA-Public Use
  Company Number: US-HALEON-USCH2023011305

PATIENT
  Sex: Female

DRUGS (2)
  1. GAS-X EXTRA STRENGTH [Suspect]
     Active Substance: DIMETHICONE
     Indication: Abdominal distension
     Dosage: UNK
     Dates: start: 20230311
  2. GAS-X EXTRA STRENGTH [Suspect]
     Active Substance: DIMETHICONE
     Indication: Flatulence

REACTIONS (2)
  - Rectal haemorrhage [Recovered/Resolved]
  - Diarrhoea [Recovered/Resolved]

NARRATIVE: CASE EVENT DATE: 20230313
